FAERS Safety Report 17043891 (Version 1)
Quarter: 2019Q4

REPORT INFORMATION
  Report Type: Spontaneous
  Country: US (occurrence: US)
  Receive Date: 20191017
  Receipt Date: 20191017
  Transmission Date: 20200122
  Serious: Yes (Hospitalization)
  Sender: FDA-Public Use
  Company Number: None

PATIENT
  Age: 61 Year
  Sex: Female
  Weight: 65.7 kg

DRUGS (3)
  1. BLEOMYCIN [Suspect]
     Active Substance: BLEOMYCIN SULFATE
     Dates: end: 20190923
  2. CISPLATIN. [Suspect]
     Active Substance: CISPLATIN
     Dates: end: 20190927
  3. ETOPOSIDE (VP-16) [Suspect]
     Active Substance: ETOPOSIDE
     Dates: end: 20190927

REACTIONS (11)
  - Atrial thrombosis [None]
  - Neutrophil count decreased [None]
  - Vomiting [None]
  - Haemoglobin decreased [None]
  - Pulmonary embolism [None]
  - Nausea [None]
  - Left atrial enlargement [None]
  - Neutropenia [None]
  - Tachycardia [None]
  - Infection [None]
  - Platelet count decreased [None]

NARRATIVE: CASE EVENT DATE: 20190930
